FAERS Safety Report 7310645-7 (Version None)
Quarter: 2011Q1

REPORT INFORMATION
  Report Type: 
  Country: None (occurrence: None)
  Receive Date: 20110224
  Receipt Date: 20100616
  Transmission Date: 20110831
  Serious: No
  Sender: FDA-Public Use
  Company Number: US-BRISTOL-MYERS SQUIBB COMPANY-15155054

PATIENT
  Age: 66 Year
  Sex: Male

DRUGS (3)
  1. PLAVIX [Suspect]
     Indication: STENT PLACEMENT
     Dosage: DISCONTINUED 21/2 MONTHS AGO.FILM COATED TABS
     Route: 048
     Dates: start: 20010101, end: 20100101
  2. METFORMIN HCL [Suspect]
     Dates: start: 20100101, end: 20100101
  3. PLAVIX [Suspect]
     Indication: MYOCARDIAL INFARCTION
     Dosage: DISCONTINUED 21/2 MONTHS AGO.FILM COATED TABS
     Route: 048
     Dates: start: 20010101, end: 20100101

REACTIONS (3)
  - OEDEMA PERIPHERAL [None]
  - PRURITUS [None]
  - RASH [None]
